FAERS Safety Report 5725440-X (Version None)
Quarter: 2008Q2

REPORT INFORMATION
  Report Type: 
  Country: None (occurrence: None)
  Receive Date: 20080501
  Receipt Date: 20080423
  Transmission Date: 20081010
  Serious: Yes (Death)
  Sender: FDA-Public Use
  Company Number: US-PFIZER INC-2008035777

PATIENT
  Sex: Male

DRUGS (2)
  1. LIPITOR [Suspect]
  2. NORVASC [Suspect]

REACTIONS (1)
  - DEATH [None]
